FAERS Safety Report 8600928-2 (Version None)
Quarter: 2012Q3

REPORT INFORMATION
  Report Type: 
  Country: None (occurrence: None)
  Receive Date: 20120817
  Receipt Date: 20120808
  Transmission Date: 20120928
  Serious: Yes (Other)
  Sender: FDA-Public Use
  Company Number: SE-SANOFI-AVENTIS-2012SA057047

PATIENT
  Age: 47 Year
  Sex: Male

DRUGS (1)
  1. DRONEDARONE HCL [Suspect]
     Route: 048
     Dates: start: 20110801

REACTIONS (1)
  - WEIGHT INCREASED [None]
